FAERS Safety Report 9246779 (Version 2)
Quarter: 2014Q1

REPORT INFORMATION
  Report Type: Spontaneous
  Country: US (occurrence: US)
  Receive Date: 20130422
  Receipt Date: 20140107
  Transmission Date: 20141002
  Serious: No
  Sender: FDA-Public Use
  Company Number: US-ASTRAZENECA-2013SE20337

PATIENT
  Age: 71 Year
  Sex: Female
  Weight: 95.3 kg

DRUGS (9)
  1. ARIMIDEX [Suspect]
     Indication: BREAST CANCER
     Route: 048
     Dates: start: 20080304, end: 2013
  2. ARIMIDEX [Suspect]
     Indication: BREAST CANCER
     Route: 048
     Dates: start: 2013
  3. LISINOPRIL [Suspect]
     Indication: BLOOD PRESSURE ABNORMAL
     Route: 048
     Dates: start: 2006
  4. PRISTIQ [Suspect]
  5. AMBIEN [Concomitant]
     Indication: SLEEP DISORDER
  6. ZOLOFT [Concomitant]
     Indication: ANXIETY
     Route: 048
     Dates: start: 2006
  7. ATIVAN [Concomitant]
     Indication: ANXIETY
     Route: 048
  8. SYNTHROID [Concomitant]
  9. DELSYN [Concomitant]

REACTIONS (20)
  - Cataract [Recovering/Resolving]
  - Depression [Recovered/Resolved]
  - Malaise [Not Recovered/Not Resolved]
  - Influenza like illness [Not Recovered/Not Resolved]
  - Dry mouth [Not Recovered/Not Resolved]
  - Dizziness [Recovered/Resolved]
  - Vision blurred [Not Recovered/Not Resolved]
  - Anxiety [Not Recovered/Not Resolved]
  - Rotavirus infection [Not Recovered/Not Resolved]
  - Chills [Not Recovered/Not Resolved]
  - Tremor [Recovered/Resolved]
  - Decreased appetite [Recovering/Resolving]
  - Trigger finger [Recovering/Resolving]
  - Hot flush [Not Recovered/Not Resolved]
  - Nausea [Recovered/Resolved]
  - Arthralgia [Recovering/Resolving]
  - Fatigue [Not Recovered/Not Resolved]
  - Headache [Recovered/Resolved]
  - Vomiting [Not Recovered/Not Resolved]
  - Diarrhoea [Not Recovered/Not Resolved]
